FAERS Safety Report 7807379-9 (Version None)
Quarter: 2011Q4

REPORT INFORMATION
  Report Type: 
  Country: None (occurrence: None)
  Receive Date: 20111011
  Receipt Date: 20111004
  Transmission Date: 20120403
  Serious: Yes (Hospitalization)
  Sender: FDA-Public Use
  Company Number: US-UCBSA-042288

PATIENT
  Age: 43 Year
  Sex: Male

DRUGS (1)
  1. CIMZIA [Suspect]
     Indication: CROHN'S DISEASE
     Route: 058
     Dates: start: 20110607, end: 20110101

REACTIONS (4)
  - ABSCESS [None]
  - URETERIC INJURY [None]
  - INCISIONAL HERNIA [None]
  - DRAIN REMOVAL [None]
